FAERS Safety Report 9361093 (Version 1)
Quarter: 2013Q2

REPORT INFORMATION
  Report Type: Spontaneous
  Country: GB (occurrence: GB)
  Receive Date: 20130621
  Receipt Date: 20130621
  Transmission Date: 20140414
  Serious: Yes (Other)
  Sender: FDA-Public Use
  Company Number: GB-BAYER-2013-074462

PATIENT
  Sex: Female

DRUGS (1)
  1. CANESTEN CREME [Suspect]
     Indication: VULVOVAGINAL CANDIDIASIS
     Dosage: UNK
     Dates: start: 20130607, end: 20130610

REACTIONS (1)
  - Haemorrhage [None]
